FAERS Safety Report 4664320-8 (Version None)
Quarter: 2005Q2

REPORT INFORMATION
  Report Type: 
  Country: None (occurrence: None)
  Receive Date: 20050518
  Receipt Date: 20030129
  Transmission Date: 20051028
  Serious: Yes (Death)
  Sender: FDA-Public Use
  Company Number: PHFR2003GB05127

PATIENT

DRUGS (1)
  1. DIOVAN [Suspect]

REACTIONS (2)
  - MALAISE [None]
  - UNEVALUABLE EVENT [None]
